FAERS Safety Report 18458541 (Version 2)
Quarter: 2020Q4

REPORT INFORMATION
  Report Type: Spontaneous
  Country: US (occurrence: US)
  Receive Date: 20201103
  Receipt Date: 20201126
  Transmission Date: 20210114
  Serious: No
  Sender: FDA-Public Use
  Company Number: US-PFIZER INC-2019172868

PATIENT
  Age: 82 Year
  Sex: Female
  Weight: 77.1 kg

DRUGS (3)
  1. LYRICA [Suspect]
     Active Substance: PREGABALIN
     Indication: NERVE COMPRESSION
     Dosage: 1 CAPSULE, DAILY
  2. LYRICA [Suspect]
     Active Substance: PREGABALIN
     Dosage: 50 MG, ONCE DAILY
     Route: 048
  3. LYRICA [Suspect]
     Active Substance: PREGABALIN
     Indication: PAIN
     Dosage: 50 MG, TWICE A DAY

REACTIONS (4)
  - Blood iron decreased [Unknown]
  - Somnolence [Unknown]
  - Intentional product misuse [Unknown]
  - Fatigue [Unknown]
